FAERS Safety Report 22021577 (Version 1)
Quarter: 2023Q1

REPORT INFORMATION
  Report Type: Spontaneous
  Country: NZ (occurrence: None)
  Receive Date: 20230222
  Receipt Date: 20230222
  Transmission Date: 20230417
  Serious: Yes (Other)
  Sender: FDA-Public Use
  Company Number: 2023A040451

PATIENT

DRUGS (1)
  1. IRESSA [Suspect]
     Active Substance: GEFITINIB
     Route: 048

REACTIONS (1)
  - Metastases to lung [Not Recovered/Not Resolved]
